FAERS Safety Report 8042806-6 (Version None)
Quarter: 2012Q1

REPORT INFORMATION
  Report Type: 
  Country: None (occurrence: None)
  Receive Date: 20120112
  Receipt Date: 20120109
  Transmission Date: 20120608
  Serious: No
  Sender: FDA-Public Use
  Company Number: US-BAYER-2010-004415

PATIENT
  Sex: Female

DRUGS (4)
  1. YAZ [Suspect]
     Indication: ALOPECIA
  2. YAZ [Suspect]
     Indication: BLOOD OESTROGEN DECREASED
  3. YAZ [Suspect]
     Indication: CONTRACEPTION
     Dosage: UNK
     Dates: start: 20110101
  4. YAZ [Suspect]
     Indication: HYPERTRICHOSIS

REACTIONS (2)
  - MENSTRUAL DISORDER [None]
  - MENSTRUATION DELAYED [None]
